FAERS Safety Report 6497623-5 (Version None)
Quarter: 2009Q4

REPORT INFORMATION
  Report Type: 
  Country: None (occurrence: None)
  Receive Date: 20091215
  Receipt Date: 20091211
  Transmission Date: 20100525
  Serious: Yes (Other)
  Sender: FDA-Public Use
  Company Number: US-ROCHE-638122

PATIENT
  Age: 12 Year
  Sex: Male
  Weight: 63 kg

DRUGS (7)
  1. CLONAZEPAM [Suspect]
     Dosage: FORM: WAFERS
     Route: 048
     Dates: start: 20090601
  2. KLONOPIN [Suspect]
     Dosage: ONCE NIGHTLY
     Route: 048
     Dates: start: 20080101
  3. KLONOPIN [Suspect]
     Route: 048
     Dates: start: 20090801
  4. DILANTIN [Concomitant]
  5. NEXIUM [Concomitant]
  6. SYNTHROID [Concomitant]
  7. PENTASA [Concomitant]

REACTIONS (4)
  - CONVULSION [None]
  - ILL-DEFINED DISORDER [None]
  - IRRITABLE BOWEL SYNDROME [None]
  - PAIN [None]
